FAERS Safety Report 16006703 (Version 2)
Quarter: 2019Q1

REPORT INFORMATION
  Report Type: Spontaneous
  Country: AR (occurrence: AR)
  Receive Date: 20190226
  Receipt Date: 20190228
  Transmission Date: 20190418
  Serious: Yes (Death, Life-Threatening, Hospitalization, Other)
  Sender: FDA-Public Use
  Company Number: AR-PFIZER INC-2019082050

PATIENT
  Age: 15 Year
  Sex: Female

DRUGS (7)
  1. FK506 [Suspect]
     Active Substance: TACROLIMUS
     Indication: IMMUNOSUPPRESSANT DRUG THERAPY
     Dosage: 12 MG, 1X/DAY
     Dates: start: 201205, end: 201301
  2. MYCOPHENOLATE MOFETIL. [Suspect]
     Active Substance: MYCOPHENOLATE MOFETIL
     Indication: IMMUNOSUPPRESSANT DRUG THERAPY
     Dosage: 8 MG/KG, 2X/DAY (8 MG/KG/DOSE (2/D))
     Dates: start: 201205, end: 201301
  3. METHYLPREDNISOLONE SODIUM SUCCINATE. [Suspect]
     Active Substance: METHYLPREDNISOLONE SODIUM SUCCINATE
     Dosage: 0.3 MG/KG, DAILY
  4. INSULIN [Concomitant]
     Active Substance: INSULIN NOS
     Indication: DIABETES MELLITUS
     Dosage: UNK
  5. PREDNISONE. [Suspect]
     Active Substance: PREDNISONE
     Indication: IMMUNOSUPPRESSANT DRUG THERAPY
     Dosage: 0.3 MG/KG, 1X/DAY
     Dates: start: 201205, end: 201301
  6. METHYLPREDNISOLONE SODIUM SUCCINATE. [Suspect]
     Active Substance: METHYLPREDNISOLONE SODIUM SUCCINATE
     Indication: IMMUNOSUPPRESSANT DRUG THERAPY
     Dosage: 10 MG/KG, 1X/DAY (10 MG/KG/D)
     Dates: start: 201205, end: 201205
  7. FILGRASTIM [Concomitant]
     Active Substance: FILGRASTIM
     Indication: LYMPHOCYTE COUNT DECREASED
     Dosage: UNK
     Route: 058

REACTIONS (4)
  - Human herpesvirus 8 infection [Fatal]
  - Metastatic neoplasm [Fatal]
  - Respiratory distress [Not Recovered/Not Resolved]
  - Kaposi^s sarcoma [Fatal]

NARRATIVE: CASE EVENT DATE: 201301
